FAERS Safety Report 8053770-8 (Version None)
Quarter: 2012Q1

REPORT INFORMATION
  Report Type: 
  Country: None (occurrence: None)
  Receive Date: 20120118
  Receipt Date: 20120106
  Transmission Date: 20120608
  Serious: Yes (Hospitalization)
  Sender: FDA-Public Use
  Company Number: JP-ACTELION-A-CH2011-57334

PATIENT
  Sex: Male
  Weight: 36 kg

DRUGS (7)
  1. TRACLEER [Suspect]
     Indication: PORTOPULMONARY HYPERTENSION
     Dosage: 31.25 MG, QD
     Route: 048
     Dates: start: 20051003, end: 20051027
  2. OXYGEN [Concomitant]
  3. EPOPROSTENOL SODIUM [Concomitant]
  4. OMEPRAZOLE [Concomitant]
  5. TEPRENONE [Concomitant]
  6. FERROUS SULFATE TAB [Concomitant]
  7. SODIUM ALGINATE [Concomitant]

REACTIONS (2)
  - TRANSFUSION [None]
  - MELAENA [None]
